FAERS Safety Report 5736738-3 (Version None)
Quarter: 2008Q2

REPORT INFORMATION
  Report Type: 
  Country: None (occurrence: None)
  Receive Date: 20080513
  Receipt Date: 20080505
  Transmission Date: 20081010
  Serious: Yes (Other)
  Sender: FDA-Public Use
  Company Number: PHHY2008BR07176

PATIENT
  Age: 87 Year
  Sex: Female
  Weight: 42 kg

DRUGS (9)
  1. SEROQUEL [Concomitant]
     Indication: DEMENTIA ALZHEIMER'S TYPE
     Dosage: 2 DF, QHS
     Route: 048
     Dates: start: 20070301
  2. FLURAZEPAM [Concomitant]
     Indication: TREMOR
     Dosage: 1 DF, QD
     Route: 048
     Dates: start: 20080101
  3. MICARDIS [Concomitant]
     Indication: HYPERTENSION
     Dosage: 1 DF, QD
     Route: 048
     Dates: start: 20050101
  4. BETAHISTINE [Concomitant]
     Indication: DIZZINESS
     Dosage: 1 DF, QD
     Route: 048
     Dates: start: 20070101
  5. MOTILIUM [Concomitant]
     Dosage: 1 DF, BID
     Route: 048
  6. PANTOPRAZOLE SODIUM [Concomitant]
     Dosage: 1 DF, QD
     Route: 048
  7. PROLOPA [Concomitant]
     Indication: TREMOR
     Route: 048
     Dates: start: 20080201
  8. EXELON [Suspect]
     Indication: DEMENTIA ALZHEIMER'S TYPE
     Dosage: 3 MG
     Route: 048
     Dates: start: 20070101
  9. EXELON [Suspect]
     Dosage: 4.5 MG
     Route: 048

REACTIONS (9)
  - ABASIA [None]
  - ABDOMINAL PAIN UPPER [None]
  - BLOOD PRESSURE DECREASED [None]
  - CEREBROVASCULAR ACCIDENT [None]
  - COLD SWEAT [None]
  - DYSPHAGIA [None]
  - NAUSEA [None]
  - SOMNOLENCE [None]
  - TREMOR [None]
